FAERS Safety Report 19939969 (Version 2)
Quarter: 2022Q1

REPORT INFORMATION
  Report Type: Spontaneous
  Country: US (occurrence: US)
  Receive Date: 20211011
  Receipt Date: 20220202
  Transmission Date: 20220423
  Serious: Yes (Life-Threatening, Hospitalization, Other)
  Sender: FDA-Public Use
  Company Number: US-SA-SAC20211008000993

PATIENT
  Age: 30 Year
  Sex: Female
  Weight: 131.52 kg

DRUGS (1)
  1. DUPIXENT [Suspect]
     Active Substance: DUPILUMAB
     Indication: Asthma
     Dosage: 300 MG, QOW
     Route: 058
     Dates: start: 20210721, end: 20210812

REACTIONS (20)
  - Cyanosis [Unknown]
  - Diarrhoea [Unknown]
  - Cough [Unknown]
  - Body temperature increased [Unknown]
  - Dysphonia [Unknown]
  - Oxygen saturation decreased [Unknown]
  - Contusion [Unknown]
  - Cyanosis central [Unknown]
  - Feeling abnormal [Unknown]
  - Urticaria [Unknown]
  - Rash erythematous [Unknown]
  - Angioedema [Unknown]
  - Anaphylactic shock [Unknown]
  - Pharyngeal paraesthesia [Unknown]
  - Swelling face [Unknown]
  - Cough [Unknown]
  - Vomiting [Unknown]
  - Dyspnoea [Unknown]
  - Anaphylactic reaction [Unknown]
  - Flushing [Unknown]

NARRATIVE: CASE EVENT DATE: 20210721
